FAERS Safety Report 23104029 (Version 1)
Quarter: 2023Q4

REPORT INFORMATION
  Report Type: Spontaneous
  Country: US (occurrence: None)
  Receive Date: 20231022
  Receipt Date: 20231022
  Transmission Date: 20240110
  Serious: Yes (Life-Threatening, Hospitalization)
  Sender: FDA-Public Use
  Company Number: None

PATIENT
  Age: 75 Year
  Sex: Male
  Weight: 68 kg

DRUGS (2)
  1. WARFARIN SODIUM [Suspect]
     Active Substance: WARFARIN SODIUM
     Dates: start: 20221216, end: 20230324
  2. ASPIRIN [Suspect]
     Active Substance: ASPIRIN
     Dosage: FREQUENCY : DAILY;?
     Route: 048
     Dates: start: 20070717, end: 20230324

REACTIONS (5)
  - Gastrointestinal haemorrhage [None]
  - Dizziness [None]
  - Tachypnoea [None]
  - Vomiting [None]
  - Haematemesis [None]

NARRATIVE: CASE EVENT DATE: 20230324
